FAERS Safety Report 7503603-0 (Version None)
Quarter: 2011Q2

REPORT INFORMATION
  Report Type: 
  Country: None (occurrence: None)
  Receive Date: 20110525
  Receipt Date: 20110518
  Transmission Date: 20111010
  Serious: Yes (Hospitalization)
  Sender: FDA-Public Use
  Company Number: JP-PFIZER INC-2011104429

PATIENT
  Age: 69 Year
  Sex: Female
  Weight: 46 kg

DRUGS (1)
  1. ZOSYN [Suspect]
     Indication: BACTERIAL INFECTION
     Dosage: 4.5 G, 3X/DAY
     Route: 041
     Dates: start: 20110430, end: 20110503

REACTIONS (1)
  - TUBULOINTERSTITIAL NEPHRITIS [None]
